FAERS Safety Report 5281545-1 (Version None)
Quarter: 2007Q1

REPORT INFORMATION
  Report Type: 
  Country: None (occurrence: None)
  Receive Date: 20070323
  Receipt Date: 20070323
  Transmission Date: 20070707
  Serious: Yes (Other)
  Sender: FDA-Public Use
  Company Number: None

PATIENT
  Sex: Male
  Weight: 114.9 kg

DRUGS (1)
  1. XOLAIR [Suspect]
     Indication: ASTHMA
     Dosage: 300 MG  Q4WKS  SUBCU
     Route: 058
     Dates: start: 20041013, end: 20070126

REACTIONS (1)
  - ALOPECIA UNIVERSALIS [None]
